FAERS Safety Report 8319965-0 (Version None)
Quarter: 2012Q2

REPORT INFORMATION
  Report Type: 
  Country: None (occurrence: None)
  Receive Date: 20120427
  Receipt Date: 20120424
  Transmission Date: 20120825
  Serious: Yes (Death)
  Sender: FDA-Public Use
  Company Number: US-B.I. PHARMACEUTICALS,INC./RIDGEFIELD-2012-BP-09368BP

PATIENT
  Age: 6 Decade
  Sex: Male

DRUGS (1)
  1. PRADAXA [Suspect]
     Dates: start: 20120101

REACTIONS (4)
  - MYOCARDIAL INFARCTION [None]
  - ROAD TRAFFIC ACCIDENT [None]
  - GASTROINTESTINAL HAEMORRHAGE [None]
  - HAEMOGLOBIN [None]
